FAERS Safety Report 18656511 (Version 1)
Quarter: 2020Q4

REPORT INFORMATION
  Report Type: Report from Study
  Country: CO (occurrence: CO)
  Receive Date: 20201223
  Receipt Date: 20201223
  Transmission Date: 20210114
  Serious: Yes (Other)
  Sender: FDA-Public Use
  Company Number: CO-BRISTOL-MYERS SQUIBB COMPANY-BMS-2020-110094

PATIENT
  Age: 88 Year
  Sex: Female

DRUGS (1)
  1. NIVOLUMAB [Suspect]
     Active Substance: NIVOLUMAB
     Indication: MALIGNANT MELANOMA
     Dosage: 177 MILLIGRAM, EVERY 15 DAYS
     Route: 042
     Dates: start: 20190830

REACTIONS (7)
  - Cerebrovascular accident [Unknown]
  - Amnesia [Unknown]
  - Inflammation [Recovering/Resolving]
  - Off label use [Unknown]
  - Pain in extremity [Recovering/Resolving]
  - Disorientation [Unknown]
  - Gait disturbance [Unknown]

NARRATIVE: CASE EVENT DATE: 202011
